FAERS Safety Report 21877915 (Version 1)
Quarter: 2023Q1

REPORT INFORMATION
  Report Type: Spontaneous
  Country: US (occurrence: None)
  Receive Date: 20230117
  Receipt Date: 20230117
  Transmission Date: 20230417
  Serious: Yes (Other)
  Sender: FDA-Public Use
  Company Number: None

PATIENT
  Sex: Female

DRUGS (1)
  1. HUMIRA [Suspect]
     Active Substance: ADALIMUMAB
     Indication: Ankylosing spondylitis
     Route: 058

REACTIONS (7)
  - Swelling [None]
  - Generalised oedema [None]
  - Weight increased [None]
  - Feeding disorder [None]
  - Dyspnoea [None]
  - Hypoaesthesia [None]
  - Hypertension [None]
